FAERS Safety Report 4969172-4 (Version None)
Quarter: 2006Q2

REPORT INFORMATION
  Report Type: 
  Country: None (occurrence: None)
  Receive Date: 20060411
  Receipt Date: 20051114
  Transmission Date: 20061013
  Serious: No
  Sender: FDA-Public Use
  Company Number: US-BRISTOL-MYERS SQUIBB COMPANY-13180005

PATIENT
  Age: 84 Year
  Sex: Male
  Weight: 78 kg

DRUGS (10)
  1. PARAPLATIN [Suspect]
     Indication: PROSTATE CANCER
     Route: 042
     Dates: start: 20050429, end: 20050516
  2. DECADRON [Concomitant]
     Indication: PREMEDICATION
     Route: 042
  3. BENADRYL [Concomitant]
     Indication: PREMEDICATION
     Route: 042
  4. ZANTAC [Concomitant]
     Indication: PREMEDICATION
     Route: 042
  5. ALOXI [Concomitant]
     Indication: PREMEDICATION
     Route: 042
  6. PROSCAR [Concomitant]
  7. ZOCOR [Concomitant]
  8. LANOXIN [Concomitant]
  9. DETROL [Concomitant]
  10. COUMADIN [Concomitant]

REACTIONS (1)
  - SWELLING FACE [None]
